FAERS Safety Report 20724830 (Version 1)
Quarter: 2022Q2

REPORT INFORMATION
  Report Type: Spontaneous
  Country: US (occurrence: None)
  Receive Date: 20220418
  Receipt Date: 20220418
  Transmission Date: 20220721
  Serious: Yes (unspecified)
  Sender: FDA-Public Use
  Company Number: None

PATIENT
  Age: 51 Year
  Sex: Female
  Weight: 53.1 kg

DRUGS (1)
  1. REMICADE [Suspect]
     Active Substance: INFLIXIMAB
     Indication: Rheumatoid arthritis
     Dosage: OTHER FREQUENCY : EVERY 8 WEEKS;?
     Route: 041

REACTIONS (10)
  - Headache [None]
  - Chest discomfort [None]
  - Anxiety [None]
  - Vomiting [None]
  - Chills [None]
  - Retching [None]
  - Sensation of foreign body [None]
  - Crying [None]
  - Somnolence [None]
  - Headache [None]

NARRATIVE: CASE EVENT DATE: 20220418
